FAERS Safety Report 18291070 (Version 1)
Quarter: 2020Q3

REPORT INFORMATION
  Report Type: Spontaneous
  Country: US (occurrence: US)
  Receive Date: 20200921
  Receipt Date: 20200921
  Transmission Date: 20201103
  Serious: Yes (Other)
  Sender: FDA-Public Use
  Company Number: US-JNJFOC-20200921833

PATIENT
  Sex: Female

DRUGS (2)
  1. STELARA [Suspect]
     Active Substance: USTEKINUMAB
     Indication: PRODUCT USED FOR UNKNOWN INDICATION
     Route: 042
  2. LIALDA [Suspect]
     Active Substance: MESALAMINE

REACTIONS (5)
  - Diarrhoea [Unknown]
  - Feeling abnormal [Unknown]
  - Haemorrhage [Unknown]
  - Asthenia [Unknown]
  - Micturition urgency [Unknown]
